FAERS Safety Report 9787605 (Version 1)
Quarter: 2013Q4

REPORT INFORMATION
  Report Type: Other
  Country: US (occurrence: US)
  Receive Date: 20131230
  Receipt Date: 20131230
  Transmission Date: 20140711
  Serious: Yes (Hospitalization, Other)
  Sender: FDA-Public Use
  Company Number: US-SHIRE-ALL1-2013-08928

PATIENT
  Age: 72 Year
  Sex: Male

DRUGS (1)
  1. VPRIV [Suspect]
     Indication: GAUCHER^S DISEASE
     Dosage: 4800 IU, OTHER (12 VIALS BI-MONTHLY)
     Route: 041
     Dates: start: 20100602

REACTIONS (2)
  - Neoplasm malignant [Unknown]
  - Large intestine perforation [Recovering/Resolving]
